FAERS Safety Report 23493779 (Version 1)
Quarter: 2024Q1

REPORT INFORMATION
  Report Type: Report from Study
  Country: US (occurrence: None)
  Receive Date: 20240207
  Receipt Date: 20240207
  Transmission Date: 20240409
  Serious: Yes (Life-Threatening, Hospitalization, Other)
  Sender: FDA-Public Use
  Company Number: 2024A029089

PATIENT
  Sex: Male

DRUGS (1)
  1. CALQUENCE [Suspect]
     Active Substance: ACALABRUTINIB
     Indication: Chronic lymphocytic leukaemia
     Route: 048
     Dates: start: 202211

REACTIONS (9)
  - Hypertension [Unknown]
  - Umbilical hernia [Unknown]
  - Renal cyst [Unknown]
  - Cholelithiasis [Unknown]
  - Abdominal pain upper [Unknown]
  - Renal disorder [Unknown]
  - Fatigue [Unknown]
  - Chest pain [Unknown]
  - Fatigue [Unknown]
